FAERS Safety Report 23291499 (Version 8)
Quarter: 2025Q3

REPORT INFORMATION
  Report Type: Report from Study
  Country: CA (occurrence: CA)
  Receive Date: 20231213
  Receipt Date: 20250910
  Transmission Date: 20251020
  Serious: Yes (Hospitalization, Other)
  Sender: TAKEDA
  Company Number: CA-TAKEDA-2017TUS021415

PATIENT
  Age: 27 Year
  Sex: Male

DRUGS (9)
  1. VEDOLIZUMAB [Suspect]
     Active Substance: VEDOLIZUMAB
     Indication: Crohn^s disease
  2. VEDOLIZUMAB [Suspect]
     Active Substance: VEDOLIZUMAB
  3. VEDOLIZUMAB [Suspect]
     Active Substance: VEDOLIZUMAB
  4. VEDOLIZUMAB [Suspect]
     Active Substance: VEDOLIZUMAB
     Dosage: 300 MILLIGRAM, Q4WEEKS
     Dates: start: 20231221
  5. VEDOLIZUMAB [Suspect]
     Active Substance: VEDOLIZUMAB
  6. VEDOLIZUMAB [Suspect]
     Active Substance: VEDOLIZUMAB
     Dosage: 300 MILLIGRAM, Q4WEEKS
     Dates: start: 20250905
  7. IMURAN [Concomitant]
     Active Substance: AZATHIOPRINE
     Dosage: 150 MILLIGRAM, QD
  8. VERSED [Concomitant]
     Active Substance: MIDAZOLAM HYDROCHLORIDE
  9. FENTANYL [Concomitant]
     Active Substance: FENTANYL

REACTIONS (12)
  - Crohn^s disease [Unknown]
  - Intestinal stenosis [Unknown]
  - Large intestinal obstruction [Unknown]
  - Off label use [Unknown]
  - Product dose omission issue [Unknown]
  - Frequent bowel movements [Unknown]
  - Mouth ulceration [Unknown]
  - Diarrhoea [Unknown]
  - Iron deficiency anaemia [Unknown]
  - Abdominal pain [Unknown]
  - Anal fissure [Unknown]
  - Arthralgia [Unknown]

NARRATIVE: CASE EVENT DATE: 20231221
